FAERS Safety Report 9419965 (Version 1)
Quarter: 2013Q3

REPORT INFORMATION
  Report Type: Report from Study
  Country: FR (occurrence: FR)
  Receive Date: 20130725
  Receipt Date: 20130725
  Transmission Date: 20140515
  Serious: Yes (Hospitalization)
  Sender: FDA-Public Use
  Company Number: FR-ROCHE-1253177

PATIENT
  Age: 30 Year
  Sex: Female

DRUGS (5)
  1. TOCILIZUMAB [Suspect]
     Indication: RHEUMATOID ARTHRITIS
     Route: 042
     Dates: start: 20120124, end: 20120416
  2. CORTANCYL [Concomitant]
     Route: 065
  3. SOPROL [Concomitant]
     Route: 065
  4. TARDYFERON (FRANCE) [Concomitant]
     Route: 065
  5. MOPRAL (FRANCE) [Concomitant]
     Route: 065

REACTIONS (1)
  - Agranulocytosis [Recovered/Resolved]
